FAERS Safety Report 25628208 (Version 1)
Quarter: 2025Q3

REPORT INFORMATION
  Report Type: Spontaneous
  Country: US (occurrence: None)
  Receive Date: 20250731
  Receipt Date: 20250731
  Transmission Date: 20251020
  Serious: Yes (Life-Threatening, Hospitalization, Disabling, Other)
  Sender: FDA-CTU
  Company Number: None

PATIENT
  Age: 19 Year
  Sex: Female
  Weight: 72.57 kg

DRUGS (1)
  1. NEXPLANON [Suspect]
     Active Substance: ETONOGESTREL
     Dates: start: 20230110, end: 20250727

REACTIONS (5)
  - Implant site pain [None]
  - Menstruation irregular [None]
  - Heavy menstrual bleeding [None]
  - Depression [None]
  - Intentional self-injury [None]

NARRATIVE: CASE EVENT DATE: 20240624
